FAERS Safety Report 6179437-9 (Version None)
Quarter: 2009Q2

REPORT INFORMATION
  Report Type: 
  Country: None (occurrence: None)
  Receive Date: 20090505
  Receipt Date: 20090427
  Transmission Date: 20091009
  Serious: Yes (Life-Threatening, Hospitalization)
  Sender: FDA-Public Use
  Company Number: B0571922A

PATIENT
  Age: 35 Year
  Sex: Female
  Weight: 60 kg

DRUGS (1)
  1. MALARONE [Suspect]
     Indication: MALARIA PROPHYLAXIS
     Route: 048
     Dates: start: 20080708, end: 20080721

REACTIONS (1)
  - HYPONATRAEMIA [None]
